FAERS Safety Report 23257577 (Version 4)
Quarter: 2024Q1

REPORT INFORMATION
  Report Type: Report from Study
  Country: US (occurrence: US)
  Receive Date: 20231204
  Receipt Date: 20240124
  Transmission Date: 20240410
  Serious: Yes (Other)
  Sender: FDA-Public Use
  Company Number: US-ABBVIE-5486424

PATIENT
  Age: 61 Year
  Sex: Female
  Weight: 60 kg

DRUGS (4)
  1. VENCLEXTA [Suspect]
     Active Substance: VENETOCLAX
     Indication: Chronic lymphocytic leukaemia
     Dosage: FORM STRENGTH: 100 MILLIGRAM
     Route: 048
     Dates: start: 202310, end: 202311
  2. VENCLEXTA [Suspect]
     Active Substance: VENETOCLAX
     Indication: Chronic lymphocytic leukaemia
     Dosage: FORM STRENGTH 100 MILLIGRAM, DISCONTINUED IN 2023
     Route: 048
     Dates: start: 20230523
  3. VENCLEXTA [Suspect]
     Active Substance: VENETOCLAX
     Indication: Chronic lymphocytic leukaemia
     Dosage: FORM STRENGTH 100 MILLIGRAM
     Route: 048
     Dates: start: 20240109
  4. VENCLEXTA [Suspect]
     Active Substance: VENETOCLAX
     Indication: Chronic lymphocytic leukaemia
     Dosage: FORM STRENGTH: 100 MILLIGRAM
     Route: 048
     Dates: start: 202311, end: 20240109

REACTIONS (16)
  - Breast cancer recurrent [Not Recovered/Not Resolved]
  - White blood cell count decreased [Recovered/Resolved]
  - Blood sodium decreased [Not Recovered/Not Resolved]
  - Cough [Recovered/Resolved]
  - Thrombocytopenia [Not Recovered/Not Resolved]
  - Nasal dryness [Recovered/Resolved]
  - Nausea [Not Recovered/Not Resolved]
  - Rhinalgia [Recovered/Resolved]
  - Nasal discomfort [Recovering/Resolving]
  - Epistaxis [Recovered/Resolved]
  - Epistaxis [Recovering/Resolving]
  - Rhinalgia [Recovering/Resolving]
  - Platelet count decreased [Recovered/Resolved]
  - Blood sodium decreased [Recovered/Resolved]
  - White blood cell count decreased [Not Recovered/Not Resolved]
  - Nasal dryness [Recovering/Resolving]

NARRATIVE: CASE EVENT DATE: 20230901
